FAERS Safety Report 8421311-9 (Version None)
Quarter: 2012Q2

REPORT INFORMATION
  Report Type: 
  Country: None (occurrence: None)
  Receive Date: 20120608
  Receipt Date: 20120530
  Transmission Date: 20120825
  Serious: Yes (Hospitalization)
  Sender: FDA-Public Use
  Company Number: JP-VERTEX PHARMACEUTICALS INC.-AE-2012-004557

PATIENT
  Age: 65 Year
  Sex: Female

DRUGS (16)
  1. LOXOPROFEN [Concomitant]
     Route: 048
     Dates: start: 20120126
  2. VALSARTAN  AND HYDROCHLOROTHIAZIDE [Concomitant]
     Route: 048
  3. NIFEDIPINE [Concomitant]
     Route: 048
  4. URSO 250 [Concomitant]
     Route: 048
     Dates: start: 20120416
  5. GLYCYRON [Concomitant]
     Route: 048
     Dates: start: 20120416
  6. PROHEPARUM [Concomitant]
     Route: 048
     Dates: start: 20120416
  7. DIOVAN [Concomitant]
     Route: 048
  8. TELAVIC (TELAPREVIR) [Suspect]
     Indication: HEPATITIS C
     Route: 048
     Dates: start: 20120126, end: 20120214
  9. TELAVIC (TELAPREVIR) [Suspect]
     Route: 048
     Dates: start: 20120221, end: 20120307
  10. PEGINTERFERON ALFA-2A [Concomitant]
     Indication: HEPATITIS C
     Route: 051
     Dates: start: 20120126, end: 20120209
  11. FAMOTIDINE [Concomitant]
     Route: 048
  12. RIBAVIRIN [Concomitant]
     Indication: HEPATITIS C
     Route: 048
     Dates: start: 20120126, end: 20120208
  13. RIBAVIRIN [Concomitant]
     Route: 048
     Dates: start: 20120209, end: 20120307
  14. PRIMPERAN TAB [Concomitant]
     Route: 048
     Dates: start: 20120128
  15. PEGINTERFERON ALFA-2A [Concomitant]
     Route: 051
     Dates: start: 20120223, end: 20120301
  16. REBAMIPIDE [Concomitant]
     Route: 048
     Dates: start: 20120126

REACTIONS (3)
  - DECREASED APPETITE [None]
  - DEAFNESS [None]
  - DIZZINESS [None]
